FAERS Safety Report 4999439-5 (Version None)
Quarter: 2006Q2

REPORT INFORMATION
  Report Type: 
  Country: None (occurrence: None)
  Receive Date: 20060509
  Receipt Date: 20060509
  Transmission Date: 20061013
  Serious: Yes (Hospitalization)
  Sender: FDA-Public Use
  Company Number: None

PATIENT
  Sex: Female

DRUGS (4)
  1. ACETAMINOPHEN [Suspect]
     Indication: ANALGESIC EFFECT
     Dosage: 9 GRAMS PO  (DURATION: OVER 2 DAYS (~1/8/06))
     Route: 048
  2. VENLAFAXINE HCL [Concomitant]
  3. CARISOPRODOL [Concomitant]
  4. ESOMEPRAZOLE [Concomitant]

REACTIONS (6)
  - HEPATIC FAILURE [None]
  - HYPOGLYCAEMIA [None]
  - HYPOTENSION [None]
  - INCORRECT DOSE ADMINISTERED [None]
  - INTERNATIONAL NORMALISED RATIO INCREASED [None]
  - LOSS OF CONSCIOUSNESS [None]
